FAERS Safety Report 7693818-3 (Version None)
Quarter: 2011Q3

REPORT INFORMATION
  Report Type: 
  Country: None (occurrence: None)
  Receive Date: 20110819
  Receipt Date: 20110810
  Transmission Date: 20111222
  Serious: Yes (Hospitalization, Other)
  Sender: FDA-Public Use
  Company Number: AR-AMGEN-ARGSP2011038742

PATIENT
  Age: 84 Year
  Sex: Female
  Weight: 54 kg

DRUGS (4)
  1. ENBREL [Suspect]
     Indication: RHEUMATOID ARTHRITIS
     Dosage: 50 MG, WEEKLY
     Route: 058
     Dates: start: 20060717, end: 20110201
  2. ENBREL [Suspect]
     Dosage: UNK
     Route: 058
  3. PREDNISONE [Concomitant]
     Dosage: UNK
  4. METHOTREXATE [Concomitant]
     Dosage: UNK

REACTIONS (4)
  - DRY EYE [None]
  - JOINT SWELLING [None]
  - PNEUMONIA [None]
  - HERPES ZOSTER [None]
